FAERS Safety Report 4351489-8 (Version None)
Quarter: 2004Q2

REPORT INFORMATION
  Report Type: 
  Country: None (occurrence: None)
  Receive Date: 20040430
  Receipt Date: 20040430
  Transmission Date: 20050107
  Serious: Yes (Hospitalization)
  Sender: FDA-Public Use
  Company Number: None

PATIENT
  Age: 65 Year
  Sex: Male
  Weight: 99.8 kg

DRUGS (3)
  1. AUGMENTIN [Suspect]
     Indication: URINARY TRACT INFECTION
  2. RITUXAN [Suspect]
     Indication: LYMPHOMA
  3. DILANTIN [Concomitant]

REACTIONS (5)
  - OEDEMA PERIPHERAL [None]
  - PHIMOSIS [None]
  - PURPURA [None]
  - PYREXIA [None]
  - SCROTAL OEDEMA [None]
